FAERS Safety Report 8084268-9 (Version None)
Quarter: 2012Q1

REPORT INFORMATION
  Report Type: 
  Country: None (occurrence: None)
  Receive Date: 20120128
  Receipt Date: 20110305
  Transmission Date: 20120608
  Serious: No
  Sender: FDA-Public Use
  Company Number: US-ABBOTT-11P-163-0709690-00

PATIENT
  Age: 21 Year
  Sex: Male

DRUGS (2)
  1. HUMIRA [Suspect]
     Dosage: PEN
  2. HUMIRA [Suspect]
     Indication: CROHN'S DISEASE

REACTIONS (7)
  - INJECTION SITE SWELLING [None]
  - INJECTION SITE VESICLES [None]
  - INJECTION SITE WARMTH [None]
  - INJECTION SITE HAEMATOMA [None]
  - SCRATCH [None]
  - WRONG TECHNIQUE IN DRUG USAGE PROCESS [None]
  - INJECTION SITE ERYTHEMA [None]
